FAERS Safety Report 10224255 (Version 2)
Quarter: 2014Q4

REPORT INFORMATION
  Report Type: Report from Study
  Country: CN (occurrence: CN)
  Receive Date: 20140609
  Receipt Date: 20141017
  Transmission Date: 20150528
  Serious: Yes (Death)
  Sender: FDA-Public Use
  Company Number: PHHY2014CN069496

PATIENT
  Age: 28 Year
  Sex: Male

DRUGS (1)
  1. GLIVEC [Suspect]
     Active Substance: IMATINIB MESYLATE
     Indication: CHRONIC MYELOID LEUKAEMIA
     Dosage: 400 MG, QD
     Route: 048
     Dates: start: 20091013

REACTIONS (1)
  - Death [Fatal]

NARRATIVE: CASE EVENT DATE: 20140606
